FAERS Safety Report 4402316-1 (Version None)
Quarter: 2004Q3

REPORT INFORMATION
  Report Type: 
  Country: None (occurrence: None)
  Receive Date: 20040720
  Receipt Date: 20040713
  Transmission Date: 20050211
  Serious: Yes (Death, Life-Threatening)
  Sender: FDA-Public Use
  Company Number: FR-BRISTOL-MYERS SQUIBB COMPANY-12641478

PATIENT
  Age: 68 Year
  Sex: Male

DRUGS (4)
  1. ELISOR [Suspect]
     Route: 048
     Dates: start: 20040308, end: 20040315
  2. COVERSYL [Suspect]
     Route: 048
     Dates: start: 20040308, end: 20040315
  3. VIOXX [Suspect]
     Route: 048
     Dates: start: 20040308, end: 20040308
  4. OMEPRAZOLE [Suspect]
     Route: 048
     Dates: start: 20040308, end: 20040315

REACTIONS (3)
  - AGRANULOCYTOSIS [None]
  - SEPTIC SHOCK [None]
  - SHOCK [None]
